FAERS Safety Report 8591246-X (Version None)
Quarter: 2012Q3

REPORT INFORMATION
  Report Type: 
  Country: None (occurrence: None)
  Receive Date: 20120813
  Receipt Date: 20120727
  Transmission Date: 20120928
  Serious: Yes (Hospitalization)
  Sender: FDA-Public Use
  Company Number: PHEH2012US015675

PATIENT
  Sex: Female
  Weight: 81 kg

DRUGS (10)
  1. GLEEVEC [Suspect]
     Dosage: 400 MG, QD
  2. CALCITRIOL [Concomitant]
  3. POTASSIUM [Concomitant]
  4. LASIX [Concomitant]
  5. TRICOR [Concomitant]
  6. ATENOLOL [Concomitant]
  7. ALLOPURINOL [Concomitant]
  8. HUMULIN R [Concomitant]
  9. AMITRIPTYLINE HCL [Concomitant]
  10. HUMULIN R [Concomitant]

REACTIONS (1)
  - CARDIAC DISORDER [None]
